FAERS Safety Report 5043608-5 (Version None)
Quarter: 2006Q2

REPORT INFORMATION
  Report Type: 
  Country: None (occurrence: None)
  Receive Date: 20060628
  Receipt Date: 20060523
  Transmission Date: 20061013
  Serious: Yes (Hospitalization)
  Sender: FDA-Public Use
  Company Number: E044-318-3734

PATIENT
  Age: 73 Year
  Sex: Male
  Weight: 80 kg

DRUGS (7)
  1. DONEPEZIL HCL [Suspect]
     Indication: DEMENTIA
     Dosage: 5 MG, 1 IN 1 D, ORAL; SEE IMAGE
     Route: 048
     Dates: start: 20041220, end: 20050313
  2. DONEPEZIL HCL [Suspect]
     Indication: DEMENTIA
     Dosage: 5 MG, 1 IN 1 D, ORAL; SEE IMAGE
     Route: 048
     Dates: start: 20050316, end: 20050320
  3. DONEPEZIL HCL [Suspect]
     Indication: DEMENTIA
     Dosage: DOUBLEBLIND, ORAL
     Route: 048
     Dates: start: 20040803, end: 20041220
  4. LANSOPRAZOLE [Concomitant]
  5. PRAMIPEXOLE (PRAMIPEXOLE) [Concomitant]
  6. CO-CARELDOPA (SINEMET) [Concomitant]
  7. FUROSEMIDE [Concomitant]

REACTIONS (9)
  - CLOSTRIDIUM DIFFICILE COLITIS [None]
  - CONFUSIONAL STATE [None]
  - DISORIENTATION [None]
  - FEELING COLD [None]
  - HALLUCINATION [None]
  - HYPOTHERMIA [None]
  - LOWER RESPIRATORY TRACT INFECTION [None]
  - MALAISE [None]
  - NAUSEA [None]
